FAERS Safety Report 9412201 (Version 2)
Quarter: 2013Q4

REPORT INFORMATION
  Report Type: Spontaneous
  Country: BR (occurrence: BR)
  Receive Date: 20130722
  Receipt Date: 20131101
  Transmission Date: 20140711
  Serious: Yes (Other)
  Sender: FDA-Public Use
  Company Number: BR-SANOFI-AVENTIS-2013SA071500

PATIENT
  Age: 60 Year
  Sex: Female
  Weight: 60 kg

DRUGS (5)
  1. LANTUS [Suspect]
     Indication: TYPE 1 DIABETES MELLITUS
     Dosage: 8 IU AT NOON AND 6 IU AT MIDNIGHT
     Route: 058
  2. AUTOPEN 24 [Suspect]
     Indication: DEVICE THERAPY
     Dates: end: 2013
  3. DEVICE NOS [Concomitant]
     Indication: DEVICE THERAPY
     Dates: start: 201306
  4. PURAN T4 [Concomitant]
     Indication: HYPOTHYROIDISM
     Dosage: 1 TABLET DAILY UNFED IN THE MORNING
     Route: 048
     Dates: start: 2004
  5. NOVORAPID [Concomitant]
     Indication: TYPE 1 DIABETES MELLITUS
     Dosage: DOSE: 3 TO 4 IU PER MEAL
     Dates: start: 2005

REACTIONS (17)
  - Nasopharyngitis [Recovering/Resolving]
  - Rhinitis [Recovering/Resolving]
  - Cough [Recovering/Resolving]
  - Influenza [Recovering/Resolving]
  - Pyrexia [Recovering/Resolving]
  - Sinusitis [Recovering/Resolving]
  - Bone pain [Recovering/Resolving]
  - Pain [Recovering/Resolving]
  - Dyspnoea [Recovering/Resolving]
  - Ear discomfort [Recovering/Resolving]
  - Neuralgia [Recovering/Resolving]
  - Hyperglycaemia [Recovered/Resolved]
  - Pollakiuria [Recovered/Resolved]
  - Hypoglycaemia [Recovered/Resolved]
  - Feeling abnormal [Recovered/Resolved]
  - Hyperhidrosis [Recovered/Resolved]
  - Off label use [Unknown]
